FAERS Safety Report 10265968 (Version 1)
Quarter: 2014Q2

REPORT INFORMATION
  Report Type: Spontaneous
  Country: US (occurrence: US)
  Receive Date: 20140627
  Receipt Date: 20140627
  Transmission Date: 20141212
  Serious: No
  Sender: FDA-Public Use
  Company Number: US-GE HEALTHCARE MEDICAL DIAGNOSTICS-OMPQ-PR-1406S-0660

PATIENT
  Age: 44 Year
  Sex: Male

DRUGS (3)
  1. OMNIPAQUE [Suspect]
     Indication: POST PROCEDURAL DRAINAGE
     Route: 042
     Dates: start: 20140620, end: 20140620
  2. OMNIPAQUE [Suspect]
     Indication: DIAGNOSTIC PROCEDURE
  3. OXYCODONE [Concomitant]

REACTIONS (2)
  - Urticaria [Recovering/Resolving]
  - Rash macular [Recovering/Resolving]
